FAERS Safety Report 8965813 (Version 2)
Quarter: 2013Q1

REPORT INFORMATION
  Report Type: Spontaneous
  Country: DE (occurrence: DE)
  Receive Date: 20121214
  Receipt Date: 20130218
  Transmission Date: 20140127
  Serious: Yes (Other)
  Sender: FDA-Public Use
  Company Number: DE-GENZYME-POMP-1002652

PATIENT
  Age: 0 Year
  Sex: Male
  Weight: 2.17 kg

DRUGS (1)
  1. MYOZYME [Suspect]
     Indication: GLYCOGEN STORAGE DISEASE TYPE II
     Dosage: 20 MG/KG, UNK
     Route: 064
     Dates: start: 20090520

REACTIONS (4)
  - Pneumothorax [Unknown]
  - Lung infection [Unknown]
  - Respiratory disorder [Unknown]
  - Hyponatraemia [Unknown]
